FAERS Safety Report 5423014-1 (Version None)
Quarter: 2007Q3

REPORT INFORMATION
  Report Type: 
  Country: None (occurrence: None)
  Receive Date: 20070822
  Receipt Date: 20070810
  Transmission Date: 20080115
  Serious: Yes (Other)
  Sender: FDA-Public Use
  Company Number: DE-PFIZER INC-2007058883

PATIENT
  Sex: Male
  Weight: 80 kg

DRUGS (4)
  1. LYRICA [Suspect]
     Indication: PAIN
     Route: 048
     Dates: start: 20070401, end: 20070521
  2. ERGOCALM [Concomitant]
  3. IBUPROFEN TABLETS [Concomitant]
     Dosage: FREQ:IF NEEDED
  4. PASPERTIN [Concomitant]

REACTIONS (6)
  - DIPLOPIA [None]
  - EYE PAIN [None]
  - STRABISMUS [None]
  - UNEVALUABLE EVENT [None]
  - VISION BLURRED [None]
  - VISUAL FIELD DEFECT [None]
